FAERS Safety Report 24580599 (Version 1)
Quarter: 2024Q4

REPORT INFORMATION
  Report Type: Spontaneous
  Country: US (occurrence: US)
  Receive Date: 20241105
  Receipt Date: 20241105
  Transmission Date: 20250114
  Serious: No
  Sender: BAYER HEALTHCARE PHARMACEUTICALS INC.
  Company Number: US-BAYER-2024A155846

PATIENT
  Sex: Female

DRUGS (1)
  1. NATAZIA [Suspect]
     Active Substance: DIENOGEST\ESTRADIOL VALERATE
     Indication: Polycystic ovarian syndrome
     Route: 048

REACTIONS (2)
  - Product use in unapproved indication [None]
  - Product dose omission in error [None]

NARRATIVE: CASE EVENT DATE: 20241030
